FAERS Safety Report 14033542 (Version 1)
Quarter: 2017Q4

REPORT INFORMATION
  Report Type: Spontaneous
  Country: US (occurrence: None)
  Receive Date: 20171003
  Receipt Date: 20171003
  Transmission Date: 20180321
  Serious: No
  Sender: FDA-Public Use
  Company Number: None

PATIENT
  Age: 30 Year
  Sex: Male

DRUGS (1)
  1. STELARA [Suspect]
     Active Substance: USTEKINUMAB
     Indication: PSORIASIS
     Dates: start: 20170929

REACTIONS (3)
  - Back injury [None]
  - Psoriasis [None]
  - Intervertebral disc protrusion [None]

NARRATIVE: CASE EVENT DATE: 20171002
